FAERS Safety Report 13079981 (Version 3)
Quarter: 2017Q1

REPORT INFORMATION
  Report Type: Spontaneous
  Country: ES (occurrence: ES)
  Receive Date: 20170103
  Receipt Date: 20170206
  Transmission Date: 20170428
  Serious: Yes (Death, Hospitalization, Other)
  Sender: FDA-Public Use
  Company Number: ES-GILEAD-2016-0251445

PATIENT
  Age: 67 Year
  Sex: Female

DRUGS (25)
  1. NEURONTIN [Concomitant]
     Active Substance: GABAPENTIN
  2. IVABRADINE [Concomitant]
     Active Substance: IVABRADINE
     Dosage: 7.5 MG, BID
  3. ALVESCO [Concomitant]
     Active Substance: CICLESONIDE
     Dosage: 1 PUFF(S), BID
  4. ATROVENT [Concomitant]
     Active Substance: IPRATROPIUM BROMIDE
     Dosage: 2 PUFF(S), TID
  5. ADIRO [Concomitant]
     Active Substance: ASPIRIN
     Dosage: 100 MG, QD
  6. ZALDIAR [Concomitant]
     Active Substance: ACETAMINOPHEN\TRAMADOL HYDROCHLORIDE
     Dosage: UNK
  7. AMBRISENTAN [Suspect]
     Active Substance: AMBRISENTAN
     Indication: PULMONARY ARTERIAL HYPERTENSION
     Dosage: 10 MG, QD
     Route: 048
     Dates: start: 201507, end: 20161206
  8. FOSAVANCE [Concomitant]
     Active Substance: ALENDRONATE SODIUM\CHOLECALCIFEROL
  9. INSULIN [Concomitant]
     Active Substance: INSULIN NOS
  10. HYDROXYCHLOROQUINE [Concomitant]
     Active Substance: HYDROXYCHLOROQUINE
     Dosage: UNK
  11. ADIRO [Concomitant]
     Active Substance: ASPIRIN
     Dosage: 100 MG, QD
  12. CALCIUM/VITAMIN D                  /01204201/ [Concomitant]
     Active Substance: CALCIUM CARBONATE\ERGOCALCIFEROL
  13. ATROVENT [Concomitant]
     Active Substance: IPRATROPIUM BROMIDE
     Dosage: 2 PUFF(S), TID
  14. PROCORALAN [Concomitant]
     Active Substance: IVABRADINE
     Dosage: 7.5 MG, BID
  15. ENANTYUM [Concomitant]
     Active Substance: DEXKETOPROFEN TROMETAMOL
  16. HYDROXYCHLOROQUINE [Concomitant]
     Active Substance: HYDROXYCHLOROQUINE
     Dosage: UNK
  17. SEGURIL [Concomitant]
     Active Substance: FUROSEMIDE
     Dosage: 40 MG, QD
  18. ACICLOVIR [Concomitant]
     Active Substance: ACYCLOVIR
     Dosage: 800 MG, QD
  19. DACORTIN [Concomitant]
     Active Substance: PREDNISONE
     Dosage: 30 MG, UNK
  20. PROCORALAN [Concomitant]
     Active Substance: IVABRADINE
     Dosage: 7.5 MG, BID
  21. OXYGEN. [Concomitant]
     Active Substance: OXYGEN
  22. MYCOPHENOLATE [Concomitant]
     Active Substance: MYCOPHENOLIC ACID
     Dosage: 500 MG, BID
  23. ACICLOVIR [Concomitant]
     Active Substance: ACYCLOVIR
     Dosage: 800 MG, QD
  24. LYRICA [Concomitant]
     Active Substance: PREGABALIN
  25. OMEPRAZOL [Concomitant]
     Active Substance: OMEPRAZOLE
     Dosage: 40 MG, UNK

REACTIONS (10)
  - Sudden death [Fatal]
  - Respiratory tract infection [Unknown]
  - Pyrexia [Unknown]
  - Rhinorrhoea [Unknown]
  - Pain [Unknown]
  - Influenza [Unknown]
  - Pneumonia [Unknown]
  - Incorrect drug administration duration [Unknown]
  - Sputum discoloured [Unknown]
  - Cough [Unknown]

NARRATIVE: CASE EVENT DATE: 20161204
